FAERS Safety Report 7088771-X (Version None)
Quarter: 2010Q4

REPORT INFORMATION
  Report Type: 
  Country: None (occurrence: None)
  Receive Date: 20101029
  Receipt Date: 20101019
  Transmission Date: 20110411
  Serious: Yes (Hospitalization)
  Sender: FDA-Public Use
  Company Number: 019914

PATIENT
  Sex: Female
  Weight: 95.2 kg

DRUGS (6)
  1. KEPPRA [Suspect]
     Indication: EPILEPSY
     Dosage: (1000 MG BID ORAL) (500 MG BID ORAL), (INTRAVENOUS (NOT OTHERWISE SPECIFIED)) (500 MG BID, 500MG IN
     Dates: start: 20100301
  2. KEPPRA [Suspect]
     Indication: EPILEPSY
     Dosage: (1000 MG BID ORAL) (500 MG BID ORAL), (INTRAVENOUS (NOT OTHERWISE SPECIFIED)) (500 MG BID, 500MG IN
     Dates: start: 20100901
  3. KEPPRA [Suspect]
     Indication: EPILEPSY
     Dosage: (1000 MG BID ORAL) (500 MG BID ORAL), (INTRAVENOUS (NOT OTHERWISE SPECIFIED)) (500 MG BID, 500MG IN
     Dates: start: 20101015
  4. LACOSAMIDE [Suspect]
     Indication: EPILEPSY
     Dosage: (150 MG QD ORAL) (200 MG BID, 200MG IN THE MORNING AND 200MG IN THE EVENING)
     Route: 048
     Dates: start: 20100929
  5. LACOSAMIDE [Suspect]
     Indication: EPILEPSY
     Dosage: (150 MG QD ORAL) (200 MG BID, 200MG IN THE MORNING AND 200MG IN THE EVENING)
     Route: 048
     Dates: start: 20101015
  6. LAMICTAL [Suspect]
     Indication: EPILEPSY
     Dosage: 50 MG QD ORAL
     Route: 048
     Dates: start: 20100801

REACTIONS (12)
  - AGGRESSION [None]
  - AMNESIA [None]
  - DECREASED APPETITE [None]
  - DEJA VU [None]
  - DEPRESSION [None]
  - DRUG INEFFECTIVE [None]
  - DYSPEPSIA [None]
  - FEELING ABNORMAL [None]
  - HOMICIDAL IDEATION [None]
  - NAUSEA [None]
  - PERSONALITY DISORDER [None]
  - STATUS EPILEPTICUS [None]
